FAERS Safety Report 8309997-0 (Version None)
Quarter: 2012Q2

REPORT INFORMATION
  Report Type: 
  Country: None (occurrence: None)
  Receive Date: 20120425
  Receipt Date: 20120417
  Transmission Date: 20120825
  Serious: Yes (Life-Threatening, Hospitalization)
  Sender: FDA-Public Use
  Company Number: FR-PFIZER INC-FR-WYE-G04428709

PATIENT
  Age: 52 Year
  Sex: Female
  Weight: 42 kg

DRUGS (20)
  1. FLUOROURACIL [Suspect]
     Dosage: 3260 MG
     Route: 042
     Dates: start: 20090408, end: 20090408
  2. FLUOROURACIL [Suspect]
     Dosage: 3975 MG
     Route: 042
     Dates: start: 20090715, end: 20090715
  3. IRINOTECAN HCL [Suspect]
     Dosage: 260 MG
     Route: 042
     Dates: start: 20090715, end: 20090715
  4. FLUOROURACIL [Suspect]
     Dosage: UNKNOWN
     Route: 042
     Dates: start: 20090525, end: 20090525
  5. LEVOLEUCOVORIN CALCIUM [Suspect]
     Dosage: UNK
     Route: 042
     Dates: start: 20090525, end: 20090525
  6. LEVOLEUCOVORIN CALCIUM [Suspect]
     Dosage: 290 MG
     Route: 042
     Dates: start: 20090610, end: 20090610
  7. IRINOTECAN HCL [Suspect]
     Dosage: 260 MG
     Route: 042
     Dates: start: 20090610, end: 20090610
  8. AVASTIN [Suspect]
     Indication: COLORECTAL CANCER METASTATIC
     Dosage: 225 MG
     Route: 042
     Dates: start: 20090610, end: 20090610
  9. FRAXODI [Suspect]
     Indication: VENA CAVA THROMBOSIS
  10. IRINOTECAN HCL [Suspect]
     Dosage: 260 MG
     Route: 042
     Dates: start: 20090701, end: 20090701
  11. AVASTIN [Suspect]
     Dosage: 220 MG
     Route: 042
     Dates: start: 20090701, end: 20090701
  12. LEVOLEUCOVORIN CALCIUM [Suspect]
     Dosage: 280 MG
     Route: 042
     Dates: start: 20090715, end: 20090715
  13. IRINOTECAN HCL [Suspect]
     Dosage: 210 MG
     Route: 042
     Dates: start: 20090408, end: 20090408
  14. IRINOTECAN HCL [Suspect]
     Dosage: 260 MG
     Route: 042
     Dates: start: 20090525, end: 20090525
  15. FLUOROURACIL [Suspect]
     Dosage: 4025 MG
     Route: 042
     Dates: start: 20090610, end: 20090610
  16. FRAXODI [Suspect]
     Indication: PELVIC VENOUS THROMBOSIS
     Dosage: 0.6 ML, 1X/DAY
     Route: 058
     Dates: start: 20090619, end: 20090801
  17. LEVOLEUCOVORIN CALCIUM [Suspect]
     Indication: COLORECTAL CANCER METASTATIC
     Dosage: 230 MG
     Route: 042
     Dates: start: 20090408, end: 20090408
  18. LEVOLEUCOVORIN CALCIUM [Suspect]
     Dosage: 280 MG
     Route: 042
     Dates: start: 20090701, end: 20090701
  19. FLUOROURACIL [Suspect]
     Dosage: 3975 MG
     Route: 042
     Dates: start: 20090701, end: 20090701
  20. AVASTIN [Suspect]
     Dosage: 220 MG
     Route: 042
     Dates: start: 20090715, end: 20090715

REACTIONS (4)
  - ANAEMIA [None]
  - LOCALISED INTRAABDOMINAL FLUID COLLECTION [None]
  - DUODENAL ULCER HAEMORRHAGE [None]
  - CANDIDIASIS [None]
